FAERS Safety Report 25935186 (Version 1)
Quarter: 2025Q4

REPORT INFORMATION
  Report Type: Spontaneous
  Country: US (occurrence: None)
  Receive Date: 20251016
  Receipt Date: 20251016
  Transmission Date: 20260119
  Serious: Yes (Disabling, Other)
  Sender: FDA-CTU
  Company Number: None

PATIENT
  Age: 56 Year
  Sex: Female
  Weight: 65.25 kg

DRUGS (11)
  1. PROZAC [Suspect]
     Active Substance: FLUOXETINE HYDROCHLORIDE
     Indication: Depression
     Route: 048
  2. PROZAC [Suspect]
     Active Substance: FLUOXETINE HYDROCHLORIDE
     Indication: Anxiety
  3. PROZAC [Suspect]
     Active Substance: FLUOXETINE HYDROCHLORIDE
     Indication: Suicidal ideation
  4. EFFEXOR [Suspect]
     Active Substance: VENLAFAXINE HYDROCHLORIDE
  5. BUPROPION [Suspect]
     Active Substance: BUPROPION
  6. CLONAZEPAM [Suspect]
     Active Substance: CLONAZEPAM
  7. Hormone Replacement Therapy Antihistamines [Concomitant]
  8. Supplemental fiber [Concomitant]
  9. MAGNESIUM [Concomitant]
     Active Substance: MAGNESIUM
  10. AMINO ACIDS [Concomitant]
     Active Substance: AMINO ACIDS
  11. VITAMIN B COMPLEX [Concomitant]
     Active Substance: CYANOCOBALAMIN\DEXPANTHENOL\NIACINAMIDE\PYRIDOXINE HYDROCHLORIDE\RIBOFLAVIN 5^-PHOSPHATE SODIUM\THIA

REACTIONS (8)
  - Loss of therapeutic response [None]
  - Product communication issue [None]
  - Drug ineffective [None]
  - Sexual dysfunction [None]
  - Anorgasmia [None]
  - Blunted affect [None]
  - Anhedonia [None]
  - Self esteem decreased [None]

NARRATIVE: CASE EVENT DATE: 20240606
